FAERS Safety Report 15841397 (Version 1)
Quarter: 2018Q4

REPORT INFORMATION
  Report Type: Spontaneous
  Country: US (occurrence: US)
  Receive Date: 20181222
  Receipt Date: 20181222
  Transmission Date: 20190205
  Serious: No
  Sender: FDA-Public Use
  Company Number: None

PATIENT
  Age: 68 Year
  Sex: Female

DRUGS (4)
  1. CAPECITABINE 500MG ROXANE [Suspect]
     Active Substance: CAPECITABINE
     Indication: BREAST CANCER FEMALE
     Route: 048
     Dates: start: 20181102
  2. CAPECITABINE 500MG ROXANE [Suspect]
     Active Substance: CAPECITABINE
     Indication: BREAST CANCER FEMALE
  3. COLACE [Concomitant]
     Active Substance: DOCUSATE SODIUM
  4. CAPECITABINE 500MG ROXANE [Suspect]
     Active Substance: CAPECITABINE
     Indication: OESTROGEN RECEPTOR ASSAY NEGATIVE

REACTIONS (1)
  - Constipation [None]

NARRATIVE: CASE EVENT DATE: 20181103
